FAERS Safety Report 8878162 (Version 1)
Quarter: 2012Q4

REPORT INFORMATION
  Report Type: Spontaneous
  Country: GB (occurrence: None)
  Receive Date: 20121026
  Receipt Date: 20121026
  Transmission Date: 20130627
  Serious: Yes (Hospitalization)
  Sender: FDA-Public Use
  Company Number: GB-BANPHARM-20120248

PATIENT
  Age: 21 Year
  Sex: Male

DRUGS (1)
  1. IBUPROFEN UNKNOWN PRODUCT [Suspect]
     Indication: PAIN
     Route: 048
     Dates: start: 20120701, end: 20121001

REACTIONS (1)
  - Aplastic anaemia [None]
